FAERS Safety Report 7108532-2 (Version None)
Quarter: 2010Q4

REPORT INFORMATION
  Report Type: 
  Country: None (occurrence: None)
  Receive Date: 20101117
  Receipt Date: 20100831
  Transmission Date: 20110411
  Serious: No
  Sender: FDA-Public Use
  Company Number: A0876847A

PATIENT
  Age: 61 Year
  Sex: Male

DRUGS (1)
  1. VOTRIENT [Suspect]
     Dosage: 200MG FOUR TIMES PER DAY
     Route: 048
     Dates: start: 20100710

REACTIONS (1)
  - BLOOD PRESSURE INCREASED [None]
